FAERS Safety Report 5320314-0 (Version None)
Quarter: 2007Q1

REPORT INFORMATION
  Report Type: 
  Country: None (occurrence: None)
  Receive Date: 20070215
  Receipt Date: 20061024
  Transmission Date: 20070707
  Serious: Yes (Other)
  Sender: FDA-Public Use
  Company Number: MC200600742

PATIENT

DRUGS (1)
  1. ANGIOMAX [Suspect]
     Dosage: INTRAVENOUS
     Route: 042

REACTIONS (2)
  - CORONARY ARTERY THROMBOSIS [None]
  - THROMBOSIS IN DEVICE [None]
